FAERS Safety Report 25840321 (Version 1)
Quarter: 2025Q3

REPORT INFORMATION
  Report Type: Spontaneous
  Country: US (occurrence: US)
  Receive Date: 20250924
  Receipt Date: 20250924
  Transmission Date: 20251021
  Serious: Yes (Hospitalization)
  Sender: DAIICHI
  Company Number: US-DSJP-DS-2025-165797-US

PATIENT
  Sex: Female

DRUGS (1)
  1. VANFLYTA [Suspect]
     Active Substance: QUIZARTINIB DIHYDROCHLORIDE
     Indication: Product used for unknown indication
     Dosage: 35.4MG (2  TABLETS)  ONCE DAILY AT THE SAME TIME EACH DAY ON  DAYS6-19 OF A 28 DAY CYCLE
     Route: 048

REACTIONS (1)
  - Chemotherapy [Not Recovered/Not Resolved]
